FAERS Safety Report 17342381 (Version 1)
Quarter: 2020Q1

REPORT INFORMATION
  Report Type: Spontaneous
  Country: US (occurrence: US)
  Receive Date: 20200129
  Receipt Date: 20200129
  Transmission Date: 20200409
  Serious: No
  Sender: FDA-Public Use
  Company Number: US-ALLERGAN-1925897US

PATIENT
  Age: 48 Year
  Sex: Female
  Weight: 43.5 kg

DRUGS (2)
  1. BOTOX [Suspect]
     Active Substance: ONABOTULINUMTOXINA
     Indication: MIGRAINE
     Dosage: 200 UNITS, SINGLE (Q84 DAYS)
     Route: 065
     Dates: start: 20130427, end: 20130427
  2. AIMOVIG [Suspect]
     Active Substance: ERENUMAB-AOOE
     Indication: MIGRAINE
     Dosage: 140 MG, Q MONTH
     Dates: start: 20181018, end: 20190509

REACTIONS (5)
  - Skin lesion [Unknown]
  - Lip swelling [Unknown]
  - Off label use [Unknown]
  - Oral mucosal erythema [Unknown]
  - Oral candidiasis [Unknown]
